FAERS Safety Report 4868249-1 (Version None)
Quarter: 2005Q4

REPORT INFORMATION
  Report Type: 
  Country: None (occurrence: None)
  Receive Date: 20051227
  Receipt Date: 20051213
  Transmission Date: 20060501
  Serious: Yes (Other)
  Sender: FDA-Public Use
  Company Number: CTI_0866_2005

PATIENT
  Age: 50 Year
  Sex: Female

DRUGS (1)
  1. ZYFLO [Suspect]
     Dosage: 0.5 DF

REACTIONS (4)
  - DEHYDRATION [None]
  - DIARRHOEA [None]
  - NAUSEA [None]
  - RENAL FAILURE [None]
